FAERS Safety Report 4876119-8 (Version None)
Quarter: 2006Q1

REPORT INFORMATION
  Report Type: 
  Country: None (occurrence: None)
  Receive Date: 20060110
  Receipt Date: 20060103
  Transmission Date: 20060701
  Serious: Yes (Hospitalization, Other)
  Sender: FDA-Public Use
  Company Number: GB-JNJFOC-20060100388

PATIENT
  Sex: Female
  Weight: 104 kg

DRUGS (10)
  1. REMICADE [Suspect]
     Indication: RHEUMATOID ARTHRITIS
     Route: 042
  2. AZATHIOPRINE [Concomitant]
     Route: 065
  3. PREDNISOLONE [Concomitant]
     Route: 065
  4. CELECOXIB [Concomitant]
     Route: 065
  5. FLUOXETINE [Concomitant]
     Route: 065
  6. LANSOPRAZOLE [Concomitant]
     Route: 065
  7. PREMPACK C [Concomitant]
     Route: 065
  8. PREMPACK C [Concomitant]
     Route: 065
  9. THYROXINE [Concomitant]
     Route: 065
  10. TRAMADOL HCL [Concomitant]
     Route: 065

REACTIONS (1)
  - DIABETES MELLITUS [None]
